FAERS Safety Report 5479142-8 (Version None)
Quarter: 2007Q4

REPORT INFORMATION
  Report Type: 
  Country: None (occurrence: None)
  Receive Date: 20071008
  Receipt Date: 20070925
  Transmission Date: 20080405
  Serious: Yes (Other)
  Sender: FDA-Public Use
  Company Number: PHMT2007CA01599

PATIENT
  Age: 70 Year
  Sex: Male

DRUGS (5)
  1. EXELON [Suspect]
     Indication: DEMENTIA ALZHEIMER'S TYPE
     Dosage: 3 MG
     Route: 048
     Dates: start: 20060526
  2. EXELON [Suspect]
     Dosage: 9 MG DAILY
     Route: 048
     Dates: start: 20061012, end: 20061207
  3. ANTICHOLINERGICS [Suspect]
     Indication: PROSTATIC DISORDER
  4. DETROL LA [Concomitant]
     Dosage: 4 MG AT SUPPER
     Route: 048
     Dates: start: 20060203
  5. XATRAL [Concomitant]
     Dosage: 10 MG, QD
     Route: 048
     Dates: start: 20060503

REACTIONS (7)
  - CONDITION AGGRAVATED [None]
  - DRUG INTERACTION [None]
  - DYSURIA [None]
  - MICTURITION URGENCY [None]
  - POLLAKIURIA [None]
  - URINARY INCONTINENCE [None]
  - URINARY TRACT DISORDER [None]
